FAERS Safety Report 9166328 (Version 2)
Quarter: 2013Q1

REPORT INFORMATION
  Report Type: Spontaneous
  Country: FR (occurrence: FR)
  Receive Date: 20130315
  Receipt Date: 20130320
  Transmission Date: 20140127
  Serious: Yes (Other)
  Sender: FDA-Public Use
  Company Number: FR-UCBSA-080333

PATIENT
  Age: 66 Year
  Sex: Female

DRUGS (4)
  1. CIMZIA [Suspect]
     Indication: RHEUMATOID ARTHRITIS
     Route: 058
  2. CIMZIA [Suspect]
     Indication: RHEUMATOID ARTHRITIS
     Route: 058
     Dates: start: 20120221
  3. METOJECT [Concomitant]
     Indication: RHEUMATOID ARTHRITIS
     Dates: start: 201112
  4. CORTANCYL [Concomitant]
     Indication: RHEUMATOID ARTHRITIS
     Dates: start: 201112

REACTIONS (2)
  - Varicella [Recovered/Resolved]
  - C-reactive protein increased [Recovering/Resolving]
